FAERS Safety Report 11623225 (Version 2)
Quarter: 2015Q4

REPORT INFORMATION
  Report Type: Spontaneous
  Country: US (occurrence: US)
  Receive Date: 20151013
  Receipt Date: 20151130
  Transmission Date: 20160304
  Serious: No
  Sender: FDA-Public Use
  Company Number: US-JNJFOC-20150901390

PATIENT
  Age: 77 Year
  Sex: Male
  Weight: 77.11 kg

DRUGS (2)
  1. TYLENOL EXTRA STRENGTH [Suspect]
     Active Substance: ACETAMINOPHEN
     Indication: PROCEDURAL PAIN
     Dosage: 1 OR 2 TABLETS (4 OR 5 TABLETS A DAY) FOR THE PAST 2 WEEKS
     Route: 048
  2. PAIN KILLERS [Concomitant]
     Active Substance: UNSPECIFIED INGREDIENT
     Indication: PROCEDURAL PAIN
     Dosage: FOR 3 OR 4 DAYS
     Route: 065

REACTIONS (2)
  - Product use issue [Recovering/Resolving]
  - Abdominal pain upper [Recovering/Resolving]
